FAERS Safety Report 26078491 (Version 1)
Quarter: 2025Q4

REPORT INFORMATION
  Report Type: Report from Study
  Country: CN (occurrence: CN)
  Receive Date: 20251123
  Receipt Date: 20251123
  Transmission Date: 20260118
  Serious: Yes (Other)
  Sender: ALEXION PHARMACEUTICALS
  Company Number: CN-ASTRAZENECA-202511GLO012180CN

PATIENT
  Age: 12 Year
  Sex: Female

DRUGS (4)
  1. SELUMETINIB [Suspect]
     Active Substance: SELUMETINIB
     Indication: Neurofibromatosis
     Dosage: 30 MILLIGRAM, BID
     Dates: start: 20250217, end: 20250608
  2. SELUMETINIB [Suspect]
     Active Substance: SELUMETINIB
     Dosage: 30 MILLIGRAM, QD
     Dates: start: 20250609, end: 20250609
  3. SELUMETINIB [Suspect]
     Active Substance: SELUMETINIB
     Dosage: 20 MILLIGRAM, QD
     Dates: start: 20250609, end: 20250609
  4. SELUMETINIB [Suspect]
     Active Substance: SELUMETINIB
     Dosage: 20 MILLIGRAM, BID
     Dates: start: 20250610

REACTIONS (1)
  - Myocardial injury [Not Recovered/Not Resolved]

NARRATIVE: CASE EVENT DATE: 20251114
